FAERS Safety Report 24830968 (Version 2)
Quarter: 2025Q1

REPORT INFORMATION
  Report Type: Spontaneous
  Country: FR (occurrence: FR)
  Receive Date: 20250110
  Receipt Date: 20250127
  Transmission Date: 20250408
  Serious: Yes (Hospitalization, Other)
  Sender: MERCK
  Company Number: None

PATIENT
  Age: 67 Year
  Sex: Female
  Weight: 70 kg

DRUGS (4)
  1. KEYTRUDA [Suspect]
     Active Substance: PEMBROLIZUMAB
     Indication: Adenocarcinoma of the cervix
     Dosage: 1 TREATMENT IN TOTAL
     Route: 042
     Dates: start: 20240209, end: 20240209
  2. TOCILIZUMAB [Suspect]
     Active Substance: TOCILIZUMAB
     Indication: Myocarditis
     Route: 042
     Dates: start: 20240313, end: 20240325
  3. BACTRIM [Suspect]
     Active Substance: SULFAMETHOXAZOLE\TRIMETHOPRIM
     Indication: Myocarditis
     Dosage: 1 DOSAGE FORM, QD
     Route: 048
     Dates: start: 20240315, end: 20240326
  4. BEVACIZUMAB [Suspect]
     Active Substance: BEVACIZUMAB
     Indication: Adenocarcinoma of the cervix
     Dosage: 1 TREATMENT IN TOTAL
     Route: 042
     Dates: start: 20240209, end: 20240209

REACTIONS (2)
  - Thrombocytopenia [Recovered/Resolved]
  - Haemolytic anaemia [Recovering/Resolving]

NARRATIVE: CASE EVENT DATE: 20240320
